FAERS Safety Report 6101336-9 (Version None)
Quarter: 2009Q1

REPORT INFORMATION
  Report Type: 
  Country: None (occurrence: None)
  Receive Date: 20090227
  Receipt Date: 20080313
  Transmission Date: 20090719
  Serious: Yes (Disabling, Other)
  Sender: FDA-Public Use
  Company Number: 2008S1004254

PATIENT
  Sex: Female

DRUGS (2)
  1. ISOTRETINOIN [Suspect]
  2. ACCUTANE [Suspect]

REACTIONS (1)
  - CROHN'S DISEASE [None]
